FAERS Safety Report 4560868-5 (Version None)
Quarter: 2005Q1

REPORT INFORMATION
  Report Type: 
  Country: None (occurrence: None)
  Receive Date: 20050121
  Receipt Date: 20050110
  Transmission Date: 20050727
  Serious: Yes (Death, Hospitalization)
  Sender: FDA-Public Use
  Company Number: 2005CG00019

PATIENT
  Age: 62 Year
  Sex: Male

DRUGS (5)
  1. IRESSA [Suspect]
     Indication: ADENOCARCINOMA
     Dates: start: 20041001, end: 20041107
  2. IRESSA [Suspect]
     Indication: METASTATIC BRONCHIAL CARCINOMA
     Dates: start: 20041001, end: 20041107
  3. CISPLATIN [Concomitant]
  4. NAVELBINE [Concomitant]
  5. TAXOTERE [Concomitant]

REACTIONS (6)
  - CHEST X-RAY ABNORMAL [None]
  - COUGH [None]
  - DRUG INEFFECTIVE [None]
  - HYPOXIA [None]
  - PYREXIA [None]
  - RESPIRATORY DISTRESS [None]
